FAERS Safety Report 4375940-2 (Version None)
Quarter: 2004Q2

REPORT INFORMATION
  Report Type: 
  Country: None (occurrence: None)
  Receive Date: 20040607
  Receipt Date: 20040525
  Transmission Date: 20050107
  Serious: Yes (Other)
  Sender: FDA-Public Use
  Company Number: GBWYE780225MAY04

PATIENT
  Sex: Female

DRUGS (6)
  1. PREMARIN (CONJUGATED ESTROGENS, UNSPEC, 0 ) [Suspect]
  2. AUGMENTIN [Suspect]
  3. CO-DYDRAMOL (DIHYDROCODEINE BITARTRATE/PARACETAMOL,  , 0) [Suspect]
  4. FLUOXETINE (FLUOXETINE, , 0) [Suspect]
  5. METHOTREXATE [Suspect]
  6. ROFECOXIB (ROFECOXIB, , 0) [Suspect]

REACTIONS (2)
  - EYE HAEMORRHAGE [None]
  - RETINAL HAEMORRHAGE [None]
